FAERS Safety Report 15792835 (Version 1)
Quarter: 2019Q1

REPORT INFORMATION
  Report Type: Spontaneous
  Country: US (occurrence: US)
  Receive Date: 20190107
  Receipt Date: 20190107
  Transmission Date: 20190417
  Serious: No
  Sender: FDA-Public Use
  Company Number: US-GLENMARK PHARMACEUTICALS-2018GMK038145

PATIENT

DRUGS (8)
  1. CYCLOBENZAPRINE. [Concomitant]
     Active Substance: CYCLOBENZAPRINE
     Indication: ARTHRITIS
     Dosage: 10 MG, BID
     Route: 048
     Dates: start: 201807
  2. MESALAMINE. [Concomitant]
     Active Substance: MESALAMINE
     Indication: IRRITABLE BOWEL SYNDROME
     Dosage: 1.2 G, QOD
     Route: 048
     Dates: start: 201802
  3. ELIQUIS [Concomitant]
     Active Substance: APIXABAN
     Indication: THROMBOSIS
     Dosage: 2.5 MG, BID
     Route: 048
     Dates: start: 201611
  4. ONDANSETRON [Concomitant]
     Active Substance: ONDANSETRON
     Indication: ABDOMINAL DISCOMFORT
     Dosage: 8 MG, BID
     Route: 048
     Dates: start: 201801
  5. OXYCODONE [Concomitant]
     Active Substance: OXYCODONE
     Indication: PAIN
  6. GABAPENTIN TABLETS [Suspect]
     Active Substance: GABAPENTIN
     Indication: NEUROPATHY PERIPHERAL
     Dosage: 1200 MG, TID (2 TABLETS 3 TIMES A DAY)
     Route: 048
  7. OXYCODONE [Concomitant]
     Active Substance: OXYCODONE
     Indication: ARTHRITIS
     Dosage: 1 DF, QD
     Route: 048
     Dates: start: 201806
  8. CENTRUM SILVER                     /02363801/ [Concomitant]
     Active Substance: MINERALS\VITAMINS
     Indication: SUPPLEMENTATION THERAPY
     Dosage: 1 DF, OD
     Route: 048

REACTIONS (3)
  - Platelet disorder [Unknown]
  - Product use in unapproved indication [Unknown]
  - Drug effect incomplete [Unknown]
